FAERS Safety Report 21080399 (Version 6)
Quarter: 2022Q4

REPORT INFORMATION
  Report Type: Spontaneous
  Country: US (occurrence: US)
  Receive Date: 20220714
  Receipt Date: 20221012
  Transmission Date: 20230113
  Serious: No
  Sender: FDA-Public Use
  Company Number: US-PFIZER INC-PV202200007038

PATIENT
  Age: 86 Year
  Sex: Female

DRUGS (4)
  1. SOMAVERT [Suspect]
     Active Substance: PEGVISOMANT
     Indication: Acromegaly
     Dosage: 20 MG, DAILY
     Dates: start: 201911
  2. SOMAVERT [Suspect]
     Active Substance: PEGVISOMANT
     Indication: Hypothalamo-pituitary disorder
     Dosage: 20 MG, DAILY
     Dates: start: 20220621
  3. SOMAVERT [Suspect]
     Active Substance: PEGVISOMANT
     Indication: Pituitary tumour benign
  4. SOMATOSTATIN [Concomitant]
     Active Substance: SOMATOSTATIN
     Indication: Pituitary tumour benign
     Dosage: 40 MG INFUSION ONCE A MONTH

REACTIONS (2)
  - Device breakage [Unknown]
  - Needle issue [Unknown]
